FAERS Safety Report 6731186-1 (Version None)
Quarter: 2010Q2

REPORT INFORMATION
  Report Type: 
  Country: None (occurrence: None)
  Receive Date: 20100518
  Receipt Date: 20100505
  Transmission Date: 20101027
  Serious: Yes (Other)
  Sender: FDA-Public Use
  Company Number: US-ELI_LILLY_AND_COMPANY-US201005001960

PATIENT
  Sex: Female
  Weight: 45.351 kg

DRUGS (1)
  1. FORTEO [Suspect]

REACTIONS (2)
  - FALL [None]
  - PELVIC FRACTURE [None]
